FAERS Safety Report 4626840-1 (Version None)
Quarter: 2005Q1

REPORT INFORMATION
  Report Type: 
  Country: None (occurrence: None)
  Receive Date: 20050330
  Receipt Date: 20050322
  Transmission Date: 20050727
  Serious: Yes (Death)
  Sender: FDA-Public Use
  Company Number: B0375631A

PATIENT
  Age: 24 Month
  Sex: Male

DRUGS (3)
  1. MYLERAN [Suspect]
     Dosage: ORAL
     Route: 048
  2. THIOTEPA [Suspect]
     Dosage: INTRAVENOUS
     Route: 042
  3. GRANULOCYTE COL.STIM.FACT [Concomitant]

REACTIONS (4)
  - COMPLICATIONS OF TRANSPLANT SURGERY [None]
  - FEBRILE NEUTROPENIA [None]
  - GASTROINTESTINAL TOXICITY [None]
  - SEPSIS [None]
